FAERS Safety Report 13158542 (Version 5)
Quarter: 2017Q2

REPORT INFORMATION
  Report Type: Spontaneous
  Country: FR (occurrence: FR)
  Receive Date: 20170127
  Receipt Date: 20170518
  Transmission Date: 20170830
  Serious: Yes (Hospitalization)
  Sender: FDA-Public Use
  Company Number: PHHY2017FR010189

PATIENT
  Age: 43 Year
  Sex: Male

DRUGS (4)
  1. BACLOFENE [Concomitant]
     Active Substance: BACLOFEN
     Indication: NERVOUS SYSTEM DISORDER
     Dosage: UNK, BID
     Route: 048
     Dates: start: 2014
  2. GILENYA [Suspect]
     Active Substance: FINGOLIMOD HYDROCHLORIDE
     Indication: MULTIPLE SCLEROSIS
     Dosage: 0.5 MG, QD
     Route: 048
     Dates: start: 20150526, end: 20161215
  3. UVEDOSE [Concomitant]
     Active Substance: CHOLECALCIFEROL
     Indication: PRODUCT USED FOR UNKNOWN INDICATION
     Dosage: 1 DF, QMO
     Route: 065
  4. VITAMIN D3 [Concomitant]
     Active Substance: CHOLECALCIFEROL
     Indication: NERVOUS SYSTEM DISORDER
     Dosage: UNK
     Route: 048

REACTIONS (1)
  - Squamous cell carcinoma of skin [Recovered/Resolved]

NARRATIVE: CASE EVENT DATE: 201701
